FAERS Safety Report 20469183 (Version 2)
Quarter: 2022Q2

REPORT INFORMATION
  Report Type: Report from Study
  Country: US (occurrence: US)
  Receive Date: 20220214
  Receipt Date: 20220503
  Transmission Date: 20220721
  Serious: Yes (Hospitalization, Disabling, Other)
  Sender: FDA-Public Use
  Company Number: US-MYLANLABS-2022M1007618

PATIENT
  Age: 66 Year
  Sex: Female
  Weight: 56.69 kg

DRUGS (7)
  1. CLOZAPINE [Suspect]
     Active Substance: CLOZAPINE
     Indication: Bipolar disorder
     Dosage: 225 MILLIGRAM, QD (EVERY NIGHT)
     Dates: start: 20070101
  2. CLOZAPINE [Suspect]
     Active Substance: CLOZAPINE
     Dosage: 225 MILLIGRAM, QD
     Route: 048
     Dates: start: 2004, end: 20220111
  3. LIPITOR [Concomitant]
     Active Substance: ATORVASTATIN CALCIUM
     Dosage: UNK
  4. PAXIL [Concomitant]
     Active Substance: PAROXETINE HYDROCHLORIDE
     Dosage: 30 MILLIGRAM, BID
  5. BUSPAR [Concomitant]
     Active Substance: BUSPIRONE HYDROCHLORIDE
     Dosage: 5 MILLIGRAM, BID
  6. ARICEPT [Concomitant]
     Active Substance: DONEPEZIL HYDROCHLORIDE
     Dosage: 10 MILLIGRAM, HS
  7. KEPPRA [Concomitant]
     Active Substance: LEVETIRACETAM
     Dosage: 500 MILLIGRAM, BID

REACTIONS (16)
  - Catatonia [Unknown]
  - Unresponsive to stimuli [Unknown]
  - Diabetes insipidus [Unknown]
  - Hyponatraemia [Unknown]
  - Deep vein thrombosis [Unknown]
  - Lethargy [Unknown]
  - Neutropenia [Not Recovered/Not Resolved]
  - Somnolence [Unknown]
  - Pyrexia [Unknown]
  - Lymphocyte count decreased [Unknown]
  - Leukopenia [Recovering/Resolving]
  - Platelet count decreased [Unknown]
  - Lymphocyte count increased [Unknown]
  - Monocyte count decreased [Unknown]
  - Nutritional condition abnormal [Unknown]
  - Glioblastoma [Unknown]

NARRATIVE: CASE EVENT DATE: 20210929
